FAERS Safety Report 21428013 (Version 1)
Quarter: 2022Q4

REPORT INFORMATION
  Report Type: Spontaneous
  Country: US (occurrence: US)
  Receive Date: 20221008
  Receipt Date: 20221008
  Transmission Date: 20230112
  Serious: Yes (Other)
  Sender: FDA-Public Use
  Company Number: US-PURDUE-USA-2020-0201613

PATIENT
  Sex: Female

DRUGS (1)
  1. HYDROCODONE BITARTRATE AND ACETAMINOPHEN [Suspect]
     Active Substance: ACETAMINOPHEN\HYDROCODONE BITARTRATE
     Indication: Breast cancer
     Dosage: UNK
     Route: 048
     Dates: start: 2010, end: 2015

REACTIONS (6)
  - Drug dependence [Unknown]
  - Depression [Unknown]
  - Dermatillomania [Unknown]
  - Disturbance in attention [Unknown]
  - Memory impairment [Unknown]
  - Decreased interest [Unknown]
